FAERS Safety Report 23949458 (Version 1)
Quarter: 2024Q2

REPORT INFORMATION
  Report Type: Spontaneous
  Country: AT (occurrence: AT)
  Receive Date: 20240607
  Receipt Date: 20240607
  Transmission Date: 20240715
  Serious: Yes (Other)
  Sender: FDA-Public Use
  Company Number: AT-SUN PHARMACEUTICAL INDUSTRIES LTD-2024R1-449956

PATIENT
  Age: 43 Year
  Sex: Male

DRUGS (3)
  1. METHOTREXATE [Suspect]
     Active Substance: METHOTREXATE
     Indication: Mucous membrane pemphigoid
     Dosage: 30 MILLIGRAM PER LITRE, WEEKLY
     Route: 065
  2. CYCLOPHOSPHAMIDE [Suspect]
     Active Substance: CYCLOPHOSPHAMIDE
     Indication: Mucous membrane pemphigoid
     Dosage: 1 GRAM, MONTHLY
     Route: 065
  3. MYCOPHENOLATE MOFETIL [Concomitant]
     Active Substance: MYCOPHENOLATE MOFETIL
     Indication: Mucous membrane pemphigoid
     Dosage: 3 GRAM, DAILY
     Route: 065

REACTIONS (1)
  - Condition aggravated [Unknown]
